FAERS Safety Report 9101451 (Version 1)
Quarter: 2013Q1

REPORT INFORMATION
  Report Type: Spontaneous
  Country: US (occurrence: US)
  Receive Date: 20130215
  Receipt Date: 20130215
  Transmission Date: 20140127
  Serious: No
  Sender: FDA-Public Use
  Company Number: US-BAYER-2013-019043

PATIENT
  Age: 82 Year
  Sex: Female
  Weight: 73 kg

DRUGS (5)
  1. ALEVE CAPLET/TABLET,MIDOL EXTENDED RELIEF CAPLET [Suspect]
     Indication: ARTHRITIS
     Dosage: 1/2 DF, PRN
     Route: 048
     Dates: start: 201301, end: 20130202
  2. VASTEC [Concomitant]
  3. ZOLOFT [Concomitant]
  4. PREMARIN [Concomitant]
  5. ULTRAM [Concomitant]

REACTIONS (1)
  - Abdominal discomfort [None]
